FAERS Safety Report 12734998 (Version 2)
Quarter: 2016Q3

REPORT INFORMATION
  Report Type: Report from Study
  Country: ES (occurrence: ES)
  Receive Date: 20160913
  Receipt Date: 20160914
  Transmission Date: 20161109
  Serious: Yes (Other)
  Sender: FDA-Public Use
  Company Number: ES-BAXTER-2016BAX045981

PATIENT
  Age: 50 Year

DRUGS (12)
  1. GENOXAL [Suspect]
     Active Substance: CYCLOPHOSPHAMIDE
     Dosage: TREATMENT VISIT 2, COMPLETE DOSE
     Route: 065
     Dates: start: 20110602, end: 20110604
  2. RITUXIMAB [Suspect]
     Active Substance: RITUXIMAB
     Dosage: TREATMENT VISIT 3, COMPLETE DOSE
     Route: 065
     Dates: start: 20110630, end: 20110702
  3. RITUXIMAB [Suspect]
     Active Substance: RITUXIMAB
     Dosage: TREATMENT VISIT 4, COMPLETE DOSE
     Route: 065
     Dates: start: 20110728, end: 20110730
  4. FLUDARABINE [Suspect]
     Active Substance: FLUDARABINE PHOSPHATE
     Dosage: TREATMENT VISIT 2, COMPLETE DOSE
     Route: 065
     Dates: start: 20110602, end: 20110604
  5. GENOXAL [Suspect]
     Active Substance: CYCLOPHOSPHAMIDE
     Dosage: TREATMENT VISIT 4, COMPLETE DOSE
     Route: 065
     Dates: start: 20110728, end: 20110730
  6. FLUDARABINE [Suspect]
     Active Substance: FLUDARABINE PHOSPHATE
     Indication: CHRONIC LYMPHOCYTIC LEUKAEMIA
     Dosage: TREATMENT VISIT 1, REDUCED DOSE
     Route: 065
     Dates: start: 20110505, end: 20110508
  7. GENOXAL [Suspect]
     Active Substance: CYCLOPHOSPHAMIDE
     Dosage: TREATMENT VISIT 3, COMPLETE DOSE
     Route: 065
     Dates: start: 20110630, end: 20110702
  8. GENOXAL [Suspect]
     Active Substance: CYCLOPHOSPHAMIDE
     Indication: CHRONIC LYMPHOCYTIC LEUKAEMIA
     Dosage: TREATMENT VISIT 1, REDUCED DOSE
     Route: 065
     Dates: start: 20110505, end: 20110508
  9. RITUXIMAB [Suspect]
     Active Substance: RITUXIMAB
     Indication: CHRONIC LYMPHOCYTIC LEUKAEMIA
     Dosage: TREATMENT VISIT 1, COMPLETE DOSE
     Route: 065
     Dates: start: 20110505, end: 20110508
  10. RITUXIMAB [Suspect]
     Active Substance: RITUXIMAB
     Dosage: TREATMENT VISIT 2, REDUCED DOSE
     Route: 065
     Dates: start: 20110602, end: 20110604
  11. FLUDARABINE [Suspect]
     Active Substance: FLUDARABINE PHOSPHATE
     Dosage: TREATMENT VISIT 3, COMPLETE DOSE
     Route: 065
     Dates: start: 20110630, end: 20110702
  12. FLUDARABINE [Suspect]
     Active Substance: FLUDARABINE PHOSPHATE
     Dosage: TREATMENT VISIT 4, COMPLETE DOSE
     Route: 065
     Dates: start: 20110728, end: 20110730

REACTIONS (3)
  - Pyrexia [Recovered/Resolved]
  - Bronchitis [Not Recovered/Not Resolved]
  - Urinary tract pain [Recovered/Resolved]

NARRATIVE: CASE EVENT DATE: 20110818
